FAERS Safety Report 23390673 (Version 5)
Quarter: 2024Q2

REPORT INFORMATION
  Report Type: Report from Study
  Country: US (occurrence: US)
  Receive Date: 20240111
  Receipt Date: 20240523
  Transmission Date: 20240716
  Serious: Yes (Hospitalization, Other)
  Sender: FDA-Public Use
  Company Number: US-SA-SAC20240110000779

PATIENT
  Age: 68 Year
  Sex: Female

DRUGS (4)
  1. DUPIXENT [Suspect]
     Active Substance: DUPILUMAB
     Indication: Neurodermatitis
     Dosage: 300 MG, QOW
     Route: 058
  2. DUPIXENT [Suspect]
     Active Substance: DUPILUMAB
     Indication: Nasal polyps
  3. DOXYCYCLINE [Concomitant]
     Active Substance: DOXYCYCLINE\DOXYCYCLINE HYCLATE
  4. MODAFINIL [Concomitant]
     Active Substance: MODAFINIL

REACTIONS (9)
  - Pneumonia respiratory syncytial viral [Recovered/Resolved]
  - Cough [Recovered/Resolved]
  - Rheumatoid arthritis [Unknown]
  - Hospitalisation [Unknown]
  - Osteoarthritis [Unknown]
  - Blister [Not Recovered/Not Resolved]
  - Respiratory disorder [Unknown]
  - Arthralgia [Unknown]
  - Inappropriate schedule of product administration [Unknown]

NARRATIVE: CASE EVENT DATE: 20240101
